FAERS Safety Report 4885243-5 (Version None)
Quarter: 2005Q4

REPORT INFORMATION
  Report Type: 
  Country: None (occurrence: None)
  Receive Date: 20051214
  Receipt Date: 20050512
  Transmission Date: 20060501
  Serious: Yes (Hospitalization)
  Sender: FDA-Public Use
  Company Number: RS005189-USA

PATIENT
  Sex: Female

DRUGS (2)
  1. ACIPHEX [Suspect]
     Indication: GASTRITIS
     Dosage: ORAL
     Route: 048
  2. ZYPREXA [Concomitant]

REACTIONS (5)
  - BLOOD CREATINE PHOSPHOKINASE [None]
  - HEPATIC ENZYME INCREASED [None]
  - MENTAL DISORDER [None]
  - PAIN IN EXTREMITY [None]
  - RHABDOMYOLYSIS [None]
